FAERS Safety Report 5071602-7 (Version None)
Quarter: 2006Q3

REPORT INFORMATION
  Report Type: 
  Country: None (occurrence: None)
  Receive Date: 20060804
  Receipt Date: 20060607
  Transmission Date: 20061208
  Serious: Yes (Death, Hospitalization)
  Sender: FDA-Public Use
  Company Number: 2006UW11653

PATIENT
  Age: 86 Year
  Sex: Female

DRUGS (5)
  1. AMITRIPTYLINE HCL [Suspect]
     Route: 048
  2. LORCET-HD [Concomitant]
  3. BETAPACE [Concomitant]
  4. CELEBREX [Concomitant]
  5. LANOXIN [Concomitant]

REACTIONS (1)
  - DEATH [None]
